FAERS Safety Report 5097626-1 (Version None)
Quarter: 2006Q3

REPORT INFORMATION
  Report Type: 
  Country: None (occurrence: None)
  Receive Date: 20060901
  Receipt Date: 20060814
  Transmission Date: 20061208
  Serious: Yes (Other)
  Sender: FDA-Public Use
  Company Number: ENTC2006-0097

PATIENT
  Age: 69 Year
  Sex: Female

DRUGS (3)
  1. STALEVO 100 [Suspect]
     Indication: PARKINSON'S DISEASE
     Dosage: 100/25/200 MG X 4
     Route: 048
     Dates: start: 20060307, end: 20060330
  2. MODAFINIL [Suspect]
     Dosage: 100MG/DAY
     Route: 048
     Dates: end: 20051101
  3. REQUIP [Concomitant]

REACTIONS (3)
  - ATRIAL FIBRILLATION [None]
  - DYSPNOEA EXERTIONAL [None]
  - HYPOTENSION [None]
